FAERS Safety Report 6440835-7 (Version None)
Quarter: 2009Q4

REPORT INFORMATION
  Report Type: 
  Country: None (occurrence: None)
  Receive Date: 20091116
  Receipt Date: 20091105
  Transmission Date: 20100525
  Serious: Yes (Hospitalization)
  Sender: FDA-Public Use
  Company Number: US-ASTRAZENECA-2009SE24589

PATIENT
  Age: 75 Year
  Sex: Female
  Weight: 80.7 kg

DRUGS (10)
  1. NEXIUM [Suspect]
     Indication: GASTROOESOPHAGEAL REFLUX DISEASE
     Route: 048
  2. NEXIUM [Suspect]
     Dosage: 40 MG/ 2-3 DAYS A WEEK
     Route: 048
  3. TOPROL-XL [Concomitant]
     Route: 048
  4. ENALAPRIL [Concomitant]
     Route: 065
  5. HYDROCHLOROTHIAZIDE [Concomitant]
     Route: 065
  6. LABETALOL HCL [Concomitant]
     Route: 065
  7. TORVASTATIN [Concomitant]
     Route: 065
  8. GLUCOTROL [Concomitant]
     Indication: DIABETES MELLITUS
     Route: 065
  9. ASPIRIN [Concomitant]
     Route: 065
  10. PLAVIX [Concomitant]
     Route: 065

REACTIONS (2)
  - DRUG DOSE OMISSION [None]
  - PEPTIC ULCER [None]
